FAERS Safety Report 6174365-7 (Version None)
Quarter: 2009Q2

REPORT INFORMATION
  Report Type: 
  Country: None (occurrence: None)
  Receive Date: 20090430
  Receipt Date: 20090427
  Transmission Date: 20091009
  Serious: Yes (Death)
  Sender: FDA-Public Use
  Company Number: US-GILEAD-2009-0021676

PATIENT
  Sex: Female

DRUGS (10)
  1. LETAIRIS [Suspect]
     Indication: PULMONARY ARTERIAL HYPERTENSION
     Route: 048
     Dates: start: 20081013
  2. REVATIO [Concomitant]
  3. NORVASC [Concomitant]
  4. SINGULAIR [Concomitant]
  5. ADVAIR HFA [Concomitant]
  6. ALBUTEROL [Concomitant]
  7. CORTEF [Concomitant]
  8. PLAQUENIL [Concomitant]
  9. MINOCIN [Concomitant]
  10. BONIVA [Concomitant]

REACTIONS (1)
  - DEATH [None]
